FAERS Safety Report 6914689-6 (Version None)
Quarter: 2010Q3

REPORT INFORMATION
  Report Type: 
  Country: None (occurrence: None)
  Receive Date: 20100804
  Receipt Date: 20100804
  Transmission Date: 20110219
  Serious: Yes (Other)
  Sender: FDA-Public Use
  Company Number: None

PATIENT
  Age: 57 Year
  Sex: Male
  Weight: 74.8435 kg

DRUGS (15)
  1. PENNSAID [Suspect]
     Indication: MYALGIA
     Dosage: 20 DROPS ONCE RUBBED IN TO SKIN
     Route: 061
     Dates: start: 20100718
  2. PENNSAID [Suspect]
     Indication: ARTHRALGIA
     Dosage: 3 PREVIOUS USES OF DRUG WITHOUT THREE, ABOUT SAME
     Dates: start: 20100601, end: 20100701
  3. RANITIDINE [Concomitant]
  4. XYZAL [Concomitant]
  5. ASTELPRO [Concomitant]
  6. PREVACID [Concomitant]
  7. ADDERALL 10 [Concomitant]
  8. ALLERGY SHOTS [Concomitant]
  9. LEVOTHYROXINE SODIUM [Concomitant]
  10. ACETAMINOPHEN [Concomitant]
  11. FISH OIL [Concomitant]
  12. NIACIN [Concomitant]
  13. VIT. D3 [Concomitant]
  14. LEXAPRO [Concomitant]
  15. WELLBUTRIN [Concomitant]

REACTIONS (3)
  - APPLICATION SITE URTICARIA [None]
  - DERMATITIS CONTACT [None]
  - DRUG EFFECT DECREASED [None]
